FAERS Safety Report 7043793-X (Version None)
Quarter: 2010Q4

REPORT INFORMATION
  Report Type: 
  Country: None (occurrence: None)
  Receive Date: 20101008
  Receipt Date: 20101008
  Transmission Date: 20110411
  Serious: No
  Sender: FDA-Public Use
  Company Number: None

PATIENT
  Age: 52 Year
  Sex: Female

DRUGS (1)
  1. TENOFOVIR DISOPROXIL FUMARATE [Suspect]
     Indication: ACIDOSIS
     Dosage: PO
     Route: 048

REACTIONS (3)
  - ACIDOSIS [None]
  - FANCONI SYNDROME [None]
  - RENAL TUBULAR ACIDOSIS [None]
